FAERS Safety Report 18319712 (Version 1)
Quarter: 2020Q3

REPORT INFORMATION
  Report Type: Spontaneous
  Country: US (occurrence: US)
  Receive Date: 20200928
  Receipt Date: 20200928
  Transmission Date: 20201103
  Serious: Yes (Hospitalization)
  Sender: FDA-Public Use
  Company Number: US-HIKMA PHARMACEUTICALS USA INC.-US-H14001-20-04431

PATIENT

DRUGS (1)
  1. SODIUM CHLORIDE. [Suspect]
     Active Substance: SODIUM CHLORIDE
     Indication: HEADACHE
     Dosage: 20 ML/KG UP TO 1000 ML OVER 1 HOUR
     Route: 040

REACTIONS (1)
  - Hypertension [Recovered/Resolved]
